FAERS Safety Report 7862613-4 (Version None)
Quarter: 2011Q4

REPORT INFORMATION
  Report Type: 
  Country: None (occurrence: None)
  Receive Date: 20111027
  Receipt Date: 20101110
  Transmission Date: 20120403
  Serious: No
  Sender: FDA-Public Use
  Company Number: US-AMGEN-KDL356900

PATIENT
  Age: 52 Year
  Sex: Female

DRUGS (2)
  1. ENBREL [Suspect]
     Indication: RHEUMATOID ARTHRITIS
     Dosage: 50 MG, QWK
     Route: 058
     Dates: start: 20080821
  2. LEFLUNOMIDE [Concomitant]
     Dosage: UNK UNK, UNK
     Dates: start: 20080821

REACTIONS (7)
  - BACK PAIN [None]
  - MUSCULOSKELETAL PAIN [None]
  - NAUSEA [None]
  - INFECTED CYST [None]
  - DIARRHOEA [None]
  - ABDOMINAL PAIN UPPER [None]
  - CHEST PAIN [None]
